FAERS Safety Report 6929980-7 (Version None)
Quarter: 2010Q3

REPORT INFORMATION
  Report Type: 
  Country: None (occurrence: None)
  Receive Date: 20100816
  Receipt Date: 20100816
  Transmission Date: 20110219
  Serious: Yes (Other)
  Sender: FDA-Public Use
  Company Number: None

PATIENT
  Age: 63 Year
  Sex: Female
  Weight: 56.246 kg

DRUGS (2)
  1. THIOTHIXENE HCL [Suspect]
     Indication: NERVOUS SYSTEM DISORDER
     Dosage: 5MG. CAPSULE ONE DAILY ORAL
     Route: 048
     Dates: start: 20100723, end: 20100726
  2. THIOTHIXENE HCL [Suspect]
     Indication: POST-TRAUMATIC STRESS DISORDER
     Dosage: 5MG. CAPSULE ONE DAILY ORAL
     Route: 048
     Dates: start: 20100723, end: 20100726

REACTIONS (5)
  - DRY MOUTH [None]
  - DYSGEUSIA [None]
  - HEADACHE [None]
  - PRODUCT COLOUR ISSUE [None]
  - SKIN ODOUR ABNORMAL [None]
